FAERS Safety Report 7946700-8 (Version None)
Quarter: 2011Q4

REPORT INFORMATION
  Report Type: 
  Country: None (occurrence: None)
  Receive Date: 20111129
  Receipt Date: 20111128
  Transmission Date: 20120403
  Serious: No
  Sender: FDA-Public Use
  Company Number: US-PFIZER INC-2011289028

PATIENT
  Sex: Male

DRUGS (1)
  1. IBUPROFEN (ADVIL) [Suspect]
     Dosage: 1.25 MG, AS NEEDED
     Route: 048
     Dates: start: 20111124, end: 20111125

REACTIONS (1)
  - SKIN DISORDER [None]
